FAERS Safety Report 9362562 (Version 1)
Quarter: 2013Q2

REPORT INFORMATION
  Report Type: Spontaneous
  Country: US (occurrence: US)
  Receive Date: 20130622
  Receipt Date: 20130622
  Transmission Date: 20140414
  Serious: No
  Sender: FDA-Public Use
  Company Number: US-TEVA-409989USA

PATIENT
  Age: 79 Year
  Sex: Female
  Weight: 68.1 kg

DRUGS (8)
  1. PROAIR HFA [Suspect]
     Indication: COUGH
     Dosage: 2 PUFFS EVERY 4 HOURS
     Route: 055
     Dates: start: 20130528, end: 20130530
  2. PROAIR HFA [Suspect]
     Indication: UPPER RESPIRATORY TRACT INFECTION
     Dosage: 2 PUFFS TWICE A DAY
     Route: 055
     Dates: start: 20130531
  3. MUCINEX [Concomitant]
  4. ROBITUSSIN WITH CODEINE [Concomitant]
  5. AFRIN [Concomitant]
  6. FLONASE [Concomitant]
  7. NASONEX [Concomitant]
  8. Z-PAK [Concomitant]

REACTIONS (3)
  - Headache [Recovered/Resolved]
  - Drug effect decreased [Unknown]
  - Drug prescribing error [Unknown]
